FAERS Safety Report 4953989-6 (Version None)
Quarter: 2006Q1

REPORT INFORMATION
  Report Type: 
  Country: None (occurrence: None)
  Receive Date: 20060321
  Receipt Date: 20060315
  Transmission Date: 20060701
  Serious: Yes (Disabling)
  Sender: FDA-Public Use
  Company Number: HQWYE344215MAR06

PATIENT
  Age: 34 Year
  Sex: Female

DRUGS (6)
  1. INDERAL [Suspect]
     Indication: ANXIETY
     Dosage: SEE IMAGE
     Route: 048
     Dates: end: 20030101
  2. INDERAL [Suspect]
     Indication: ANXIETY
     Dosage: SEE IMAGE
     Route: 048
     Dates: start: 20030101
  3. OLANZAPINE [Suspect]
     Dosage: 5 MG 1X PER 1 DAY
     Route: 048
     Dates: start: 19950101
  4. ... [Suspect]
  5. CARBAMAZEPINE [Concomitant]
  6. ZOPICLONE (ZOPICLONE) [Concomitant]

REACTIONS (3)
  - ALOPECIA [None]
  - TINNITUS [None]
  - WEIGHT INCREASED [None]
